FAERS Safety Report 10136659 (Version 1)
Quarter: 2014Q2

REPORT INFORMATION
  Report Type: Spontaneous
  Country: US (occurrence: US)
  Receive Date: 20140429
  Receipt Date: 20140429
  Transmission Date: 20141212
  Serious: Yes (Hospitalization)
  Sender: FDA-Public Use
  Company Number: US-BAYER-2014-061959

PATIENT
  Sex: Male

DRUGS (1)
  1. XOFIGO [Suspect]
     Indication: HORMONE-REFRACTORY PROSTATE CANCER
     Dosage: DOSE REGIMEN: 50 KBQ/KG, TOTAL DAILY DOSE: UNKNOWN
     Route: 042

REACTIONS (3)
  - Liver function test abnormal [None]
  - Blood lactate dehydrogenase increased [None]
  - Jaundice [None]
